FAERS Safety Report 6608557-7 (Version None)
Quarter: 2010Q1

REPORT INFORMATION
  Report Type: 
  Country: None (occurrence: None)
  Receive Date: 20100301
  Receipt Date: 20100129
  Transmission Date: 20100710
  Serious: No
  Sender: FDA-Public Use
  Company Number: US-BAYER-201011506BCC

PATIENT
  Age: 64 Year
  Sex: Female
  Weight: 91 kg

DRUGS (10)
  1. ALEVE (CAPLET) [Suspect]
     Indication: MIGRAINE
     Route: 065
     Dates: start: 20091101
  2. ASPIRIN [Suspect]
     Indication: MIGRAINE
     Route: 065
  3. GABAPENTIN [Concomitant]
     Route: 065
  4. AMITRIPTYLINE HCL [Concomitant]
     Route: 065
  5. NADOLOL [Concomitant]
     Route: 065
  6. AMLODIPINE [Concomitant]
     Route: 065
  7. LISINOPRIL [Concomitant]
     Route: 065
  8. PHILLIP'S COLON HEALTH [Concomitant]
     Route: 065
  9. CENTRUM MULTIVITAMIN [Concomitant]
     Route: 065
  10. CALCIUM CITRATE STORE BRAND [Concomitant]

REACTIONS (2)
  - HEADACHE [None]
  - MIGRAINE [None]
